FAERS Safety Report 8199121-X (Version None)
Quarter: 2012Q1

REPORT INFORMATION
  Report Type: 
  Country: None (occurrence: None)
  Receive Date: 20120309
  Receipt Date: 20120301
  Transmission Date: 20120608
  Serious: Yes (Other)
  Sender: FDA-Public Use
  Company Number: GB-ROCHE-GNE314274

PATIENT

DRUGS (1)
  1. LUCENTIS [Suspect]
     Indication: DETACHMENT OF RETINAL PIGMENT EPITHELIUM
     Dosage: UNK
     Route: 050

REACTIONS (2)
  - RETINAL PIGMENT EPITHELIAL TEAR [None]
  - DETACHMENT OF MACULAR RETINAL PIGMENT EPITHELIUM [None]
